FAERS Safety Report 11508393 (Version 1)
Quarter: 2015Q3

REPORT INFORMATION
  Report Type: Report from Study
  Country: JP (occurrence: JP)
  Receive Date: 20150915
  Receipt Date: 20150915
  Transmission Date: 20151125
  Serious: Yes (Other)
  Sender: FDA-Public Use
  Company Number: JP-GLAXOSMITHKLINE-B0914722A

PATIENT
  Sex: Male

DRUGS (13)
  1. ATOVAQUONE. [Concomitant]
     Active Substance: ATOVAQUONE
     Dates: start: 2011, end: 20120522
  2. ATOVAQUONE. [Suspect]
     Active Substance: ATOVAQUONE
     Indication: ANTIFUNGAL PROPHYLAXIS
     Route: 048
     Dates: start: 20120523
  3. TAKEPRON [Concomitant]
     Active Substance: LANSOPRAZOLE
     Dates: start: 20120607
  4. FLUCONAZOLE. [Suspect]
     Active Substance: FLUCONAZOLE
     Indication: DISSEMINATED CRYPTOCOCCOSIS
     Dates: start: 20120229
  5. ANCOTIL [Suspect]
     Active Substance: FLUCYTOSINE
     Indication: DISSEMINATED CRYPTOCOCCOSIS
     Route: 048
     Dates: start: 20110222
  6. AMBISOME [Suspect]
     Active Substance: AMPHOTERICIN B
     Indication: DISSEMINATED CRYPTOCOCCOSIS
     Route: 042
     Dates: start: 20110304
  7. PREZISTA [Suspect]
     Active Substance: DARUNAVIR ETHANOLATE
     Indication: HIV INFECTION
     Route: 048
     Dates: start: 20110824
  8. ZITHROMAC [Concomitant]
     Active Substance: AZITHROMYCIN DIHYDRATE
     Dates: start: 20110211, end: 20120424
  9. ABACAVIR SULFATE + LAMIVUDINE [Suspect]
     Active Substance: ABACAVIR SULFATE\LAMIVUDINE
     Indication: HIV INFECTION
     Route: 048
     Dates: start: 20110309
  10. MARAVIROC [Suspect]
     Active Substance: MARAVIROC
     Indication: HIV INFECTION
     Route: 048
     Dates: start: 20121025
  11. NORVIR [Suspect]
     Active Substance: RITONAVIR
     Indication: HIV INFECTION
     Route: 048
     Dates: start: 20110824
  12. MICARDIS [Concomitant]
     Active Substance: TELMISARTAN
     Dates: start: 20120411
  13. AMLODIPINE BESILATE [Concomitant]
     Active Substance: AMLODIPINE BESYLATE
     Dates: start: 20120314

REACTIONS (3)
  - Renal impairment [Not Recovered/Not Resolved]
  - Hyperlipidaemia [Not Recovered/Not Resolved]
  - Hepatobiliary disease [Not Recovered/Not Resolved]
